FAERS Safety Report 6687838-5 (Version None)
Quarter: 2010Q2

REPORT INFORMATION
  Report Type: 
  Country: None (occurrence: None)
  Receive Date: 20100420
  Receipt Date: 20100408
  Transmission Date: 20101027
  Serious: Yes (Hospitalization, Other)
  Sender: FDA-Public Use
  Company Number: US-WYE-H14532010

PATIENT
  Sex: Male

DRUGS (4)
  1. AMIODARONE [Suspect]
     Indication: ARRHYTHMIA
     Route: 048
     Dates: start: 20100301, end: 20100301
  2. AMIODARONE [Suspect]
     Route: 048
     Dates: start: 20100301, end: 20100322
  3. AMIODARONE HYDROCHLORIDE [Suspect]
     Indication: ARRHYTHMIA
     Dosage: UNKNOWN DOSE
     Route: 042
     Dates: start: 20100301, end: 20100301
  4. AMIODARONE HYDROCHLORIDE [Suspect]
     Dosage: UNKNOWN
     Route: 042
     Dates: start: 20100301, end: 20100301

REACTIONS (5)
  - ACUTE RESPIRATORY DISTRESS SYNDROME [None]
  - HYPOTENSION [None]
  - PULMONARY OEDEMA [None]
  - THROMBOSIS [None]
  - VENTRICULAR TACHYCARDIA [None]
